FAERS Safety Report 24211826 (Version 2)
Quarter: 2024Q3

REPORT INFORMATION
  Report Type: Spontaneous
  Country: US (occurrence: US)
  Receive Date: 20240814
  Receipt Date: 20240816
  Transmission Date: 20241017
  Serious: Yes (Disabling, Other)
  Sender: ELI LILLY AND CO
  Company Number: US-ELI_LILLY_AND_COMPANY-US202408003613

PATIENT
  Age: 51 Year
  Sex: Male

DRUGS (3)
  1. HUMULIN 70/30 [Suspect]
     Active Substance: INSULIN HUMAN
     Indication: Type 1 diabetes mellitus
     Dosage: UNK, UNKNOWN
     Route: 065
  2. HUMALOG [Suspect]
     Active Substance: INSULIN LISPRO
     Indication: Type 1 diabetes mellitus
     Dosage: 100 U, DAILY
     Route: 065
  3. HUMALOG [Suspect]
     Active Substance: INSULIN LISPRO
     Dosage: UNK UNK, UNKNOWN

REACTIONS (10)
  - Paraplegia [Unknown]
  - Tibia fracture [Unknown]
  - Femur fracture [Unknown]
  - Femur fracture [Unknown]
  - Hip fracture [Unknown]
  - Fibula fracture [Unknown]
  - Infection [Unknown]
  - Osteopenia [Unknown]
  - Fall [Unknown]
  - Wrist fracture [Unknown]

NARRATIVE: CASE EVENT DATE: 20050101
